FAERS Safety Report 23596475 (Version 3)
Quarter: 2024Q2

REPORT INFORMATION
  Report Type: Report from Study
  Country: US (occurrence: US)
  Receive Date: 20240305
  Receipt Date: 20240410
  Transmission Date: 20240717
  Serious: No
  Sender: FDA-Public Use
  Company Number: US-SA-SAC20240228000026

PATIENT
  Age: 42 Year
  Sex: Female

DRUGS (4)
  1. CAPLACIZUMAB-YHDP [Suspect]
     Active Substance: CAPLACIZUMAB-YHDP
     Indication: Thrombotic thrombocytopenic purpura
     Dosage: 11 MG, QD
     Route: 058
     Dates: start: 20240202, end: 2024
  2. CAPLACIZUMAB-YHDP [Suspect]
     Active Substance: CAPLACIZUMAB-YHDP
     Indication: Thrombotic thrombocytopenic purpura
     Dosage: 11 MG, QD
     Route: 058
     Dates: start: 20240202, end: 2024
  3. CAPLACIZUMAB-YHDP [Suspect]
     Active Substance: CAPLACIZUMAB-YHDP
     Indication: Thrombotic thrombocytopenic purpura
     Dosage: 11 MG, QD
     Route: 058
     Dates: start: 20240202, end: 2024
  4. CAPLACIZUMAB-YHDP [Suspect]
     Active Substance: CAPLACIZUMAB-YHDP
     Indication: Thrombotic thrombocytopenic purpura
     Dosage: 11 MG, QD
     Route: 058
     Dates: start: 20240202, end: 2024

REACTIONS (8)
  - Contusion [Unknown]
  - White blood cell count decreased [Unknown]
  - Haemoglobin decreased [Unknown]
  - Urticaria [Unknown]
  - Epistaxis [Unknown]
  - Pruritus [Unknown]
  - Off label use [Unknown]
  - Incorrect product administration duration [Unknown]

NARRATIVE: CASE EVENT DATE: 20240101
